FAERS Safety Report 23065161 (Version 1)
Quarter: 2023Q4

REPORT INFORMATION
  Report Type: Spontaneous
  Country: DE (occurrence: DE)
  Receive Date: 20231013
  Receipt Date: 20231013
  Transmission Date: 20240110
  Serious: Yes (Hospitalization, Other)
  Sender: FDA-Public Use
  Company Number: DE-JNJFOC-20230970090

PATIENT
  Age: 9 Decade
  Sex: Female
  Weight: 55.1 kg

DRUGS (4)
  1. DEXAMETHASONE [Suspect]
     Active Substance: DEXAMETHASONE
     Indication: Plasma cell myeloma
     Dosage: LAST ADMINISTERED DOSE BEFORE SAE: 25-MAY-2023 NEXT SCHEDULED THERAPY: 24-JUN-2023
     Route: 042
     Dates: start: 20230503
  2. DEXAMETHASONE [Suspect]
     Active Substance: DEXAMETHASONE
     Dosage: LAST ADMINISTERED DOSE BEFORE SAE: 08-JUN-2023 NEXT SCHEDULED THERAPY: 08-JUL-2023
     Route: 042
     Dates: start: 20230601
  3. DARZALEX [Suspect]
     Active Substance: DARATUMUMAB
     Indication: Plasma cell myeloma
     Dosage: LAST ADMINISTERED DOSE BEFORE SAE: 08-JUN-2023 NEXT SCHEDULED THERAPY: 08-JUL-2023
     Route: 042
     Dates: start: 20230503
  4. LENALIDOMIDE [Suspect]
     Active Substance: LENALIDOMIDE
     Indication: Plasma cell myeloma
     Dosage: LAST ADMINISTERED DOSE BEFORE SAE: 22-JUN-2023 NEXT SCHEDULED THERAPY: 22-JUL-2023
     Route: 065
     Dates: start: 20230503

REACTIONS (2)
  - Dyspnoea exertional [Recovered/Resolved]
  - Pancytopenia [Unknown]

NARRATIVE: CASE EVENT DATE: 20230623
